FAERS Safety Report 8337186-2 (Version None)
Quarter: 2012Q2

REPORT INFORMATION
  Report Type: 
  Country: None (occurrence: None)
  Receive Date: 20120504
  Receipt Date: 20120424
  Transmission Date: 20120825
  Serious: Yes (Hospitalization, Other)
  Sender: FDA-Public Use
  Company Number: PHHY2012PT036397

PATIENT
  Sex: Female

DRUGS (8)
  1. ANTI-THYMOCYTE GLOBULIN EQUINE NOS [Suspect]
     Indication: IMMUNOSUPPRESSANT DRUG THERAPY
  2. EXTRANEAL [Concomitant]
  3. METHYLPREDNISOLONE [Suspect]
     Indication: IMMUNOSUPPRESSANT DRUG THERAPY
  4. MYCOPHENOLATE MOFETIL [Concomitant]
     Indication: IMMUNOSUPPRESSANT DRUG THERAPY
  5. ORTHOCLONE OKT3 [Suspect]
     Indication: IMMUNOSUPPRESSANT DRUG THERAPY
  6. STEROIDS NOS [Concomitant]
     Indication: IMMUNOSUPPRESSANT DRUG THERAPY
  7. CYCLOSPORINE [Suspect]
     Indication: IMMUNOSUPPRESSANT DRUG THERAPY
  8. PHYSIOSOL IN PLASTIC CONTAINER [Concomitant]
     Indication: PERITONEAL DIALYSIS

REACTIONS (21)
  - CONSTIPATION [None]
  - DECREASED APPETITE [None]
  - ABDOMINAL TENDERNESS [None]
  - STAPHYLOCOCCAL SKIN INFECTION [None]
  - ABDOMINAL PAIN [None]
  - APPENDIX DISORDER [None]
  - SCLEROSING ENCAPSULATING PERITONITIS [None]
  - NAUSEA [None]
  - VOMITING [None]
  - CYTOLYTIC HEPATITIS [None]
  - GASTROINTESTINAL SOUNDS ABNORMAL [None]
  - RENAL IMPAIRMENT [None]
  - STAPHYLOCOCCAL INFECTION [None]
  - APPENDICITIS [None]
  - RENAL GRAFT LOSS [None]
  - ABDOMINAL DISCOMFORT [None]
  - PALLOR [None]
  - INTESTINAL DILATATION [None]
  - DEHYDRATION [None]
  - PERITONITIS BACTERIAL [None]
  - KIDNEY TRANSPLANT REJECTION [None]
